FAERS Safety Report 6895601-5 (Version None)
Quarter: 2010Q3

REPORT INFORMATION
  Report Type: 
  Country: None (occurrence: None)
  Receive Date: 20100802
  Receipt Date: 20100727
  Transmission Date: 20110219
  Serious: Yes (Death, Hospitalization)
  Sender: FDA-Public Use
  Company Number: PHHY2010FR48031

PATIENT
  Age: 84 Year
  Sex: Male

DRUGS (6)
  1. ACLASTA [Suspect]
     Indication: OSTEOPOROSIS
  2. ACLASTA [Suspect]
     Indication: SPINAL FRACTURE
  3. MABTHERA [Suspect]
  4. INSULIN [Concomitant]
     Indication: DIABETES MELLITUS
  5. CONTRAMAL [Concomitant]
     Indication: SPINAL FRACTURE
  6. CORTICOSTEROID NOS [Concomitant]
     Indication: RHEUMATOID ARTHRITIS

REACTIONS (7)
  - ATRIOVENTRICULAR BLOCK [None]
  - CARDIAC PACEMAKER INSERTION [None]
  - CARDIO-RESPIRATORY ARREST [None]
  - DEATH [None]
  - DYSPNOEA [None]
  - MALAISE [None]
  - PULMONARY CONGESTION [None]
